FAERS Safety Report 16838886 (Version 1)
Quarter: 2019Q3

REPORT INFORMATION
  Report Type: Spontaneous
  Country: ES (occurrence: ES)
  Receive Date: 20190923
  Receipt Date: 20190923
  Transmission Date: 20191005
  Serious: Yes (Other)
  Sender: FDA-Public Use
  Company Number: ES-MYLANLABS-2019M1088134

PATIENT
  Age: 80 Year
  Sex: Male

DRUGS (6)
  1. MICAFUNGIN. [Suspect]
     Active Substance: MICAFUNGIN SODIUM
     Indication: FUNGAL ENDOCARDITIS
  2. FLUCONAZOLE. [Suspect]
     Active Substance: FLUCONAZOLE
     Indication: SYSTEMIC CANDIDA
     Dosage: 800 MILLIGRAM, QD
     Route: 065
  3. FLUCONAZOLE. [Suspect]
     Active Substance: FLUCONAZOLE
     Indication: FUNGAL ENDOCARDITIS
  4. MICAFUNGIN. [Suspect]
     Active Substance: MICAFUNGIN SODIUM
     Indication: SYSTEMIC CANDIDA
     Route: 065
  5. MICAFUNGIN. [Suspect]
     Active Substance: MICAFUNGIN SODIUM
     Indication: SYSTEMIC CANDIDA
     Dosage: 150 MILLIGRAM, QD
     Route: 065
  6. FLUCONAZOLE. [Suspect]
     Active Substance: FLUCONAZOLE
     Indication: CANDIDA INFECTION

REACTIONS (1)
  - Treatment failure [Unknown]
